FAERS Safety Report 26169662 (Version 1)
Quarter: 2025Q4

REPORT INFORMATION
  Report Type: Spontaneous
  Country: US (occurrence: None)
  Receive Date: 20251216
  Receipt Date: 20251216
  Transmission Date: 20260118
  Serious: No
  Sender: FDA-CTU
  Company Number: None

PATIENT
  Age: 35 Year
  Sex: Female
  Weight: 78.75 kg

DRUGS (2)
  1. OCREVUS [Suspect]
     Active Substance: OCRELIZUMAB
     Indication: Multiple sclerosis
     Dosage: OTHER FREQUENCY : 6 MONTHS;
     Route: 042
  2. OCREVUS [Concomitant]
     Active Substance: OCRELIZUMAB
     Dates: start: 20241126

REACTIONS (3)
  - Ear pruritus [None]
  - Infusion related reaction [None]
  - Blood pressure systolic increased [None]

NARRATIVE: CASE EVENT DATE: 20251216
